FAERS Safety Report 20134621 (Version 6)
Quarter: 2022Q1

REPORT INFORMATION
  Report Type: Spontaneous
  Country: FR (occurrence: FR)
  Receive Date: 20211201
  Receipt Date: 20220308
  Transmission Date: 20220423
  Serious: Yes (Hospitalization, Other)
  Sender: FDA-Public Use
  Company Number: FR-Accord-241111

PATIENT
  Age: 72 Year
  Sex: Male

DRUGS (10)
  1. TEMOZOLOMIDE [Suspect]
     Active Substance: TEMOZOLOMIDE
     Indication: Glioblastoma multiforme
     Dosage: UNK
  2. TEMOZOLOMIDE [Suspect]
     Active Substance: TEMOZOLOMIDE
     Dosage: 150 MILLIGRAM/SQ. METER, QD (150 MG/M2 (MILLIGRAM PER SQUARE METRE, QD)
     Route: 065
  3. AMOXICILLIN\CLAVULANIC ACID [Suspect]
     Active Substance: AMOXICILLIN\CLAVULANIC ACID
     Indication: Antibiotic therapy
     Dosage: UNK
     Route: 065
  4. CLAVULANIC ACID [Concomitant]
     Active Substance: CLAVULANIC ACID
     Indication: Dyspnoea
     Dosage: UNK
  5. CLAVULANIC ACID [Concomitant]
     Active Substance: CLAVULANIC ACID
     Indication: Pyrexia
  6. PIPERACILLIN AND TAZOBACTAM [Concomitant]
     Active Substance: PIPERACILLIN SODIUM\TAZOBACTAM SODIUM
     Indication: Evidence based treatment
     Dosage: UNK
     Route: 065
  7. SPIRAMYCIN [Concomitant]
     Active Substance: SPIRAMYCIN
     Indication: Evidence based treatment
     Dosage: UNK
     Route: 065
  8. AMOXICILLIN [Concomitant]
     Active Substance: AMOXICILLIN
     Indication: Dyspnoea
     Dosage: UNK
     Route: 065
  9. AMOXICILLIN [Concomitant]
     Active Substance: AMOXICILLIN
     Indication: Pyrexia
  10. METHYLPREDNISOLONE [Concomitant]
     Active Substance: METHYLPREDNISOLONE
     Indication: Peritumoural oedema
     Dosage: 80 MILLIGRAM, QD (80 MILLIGRAM, DAILY)
     Route: 065

REACTIONS (4)
  - Bronchopulmonary aspergillosis [Recovered/Resolved]
  - Respiratory failure [Recovering/Resolving]
  - Depressed level of consciousness [Unknown]
  - Drug ineffective [Unknown]
